FAERS Safety Report 5090762-5 (Version None)
Quarter: 2006Q3

REPORT INFORMATION
  Report Type: 
  Country: None (occurrence: None)
  Receive Date: 20060823
  Receipt Date: 20060810
  Transmission Date: 20061208
  Serious: Yes (Other)
  Sender: FDA-Public Use
  Company Number: 2006068525

PATIENT
  Age: 55 Year
  Sex: Male
  Weight: 72 kg

DRUGS (7)
  1. SUTENT [Suspect]
     Indication: METASTASES TO LUNG
     Dosage: 50 MG, 1 IN 1 D, ORAL; 37.5 MG, 1 IN 1 D, ORAL
     Route: 048
     Dates: start: 20060101
  2. SUTENT [Suspect]
     Indication: RENAL CELL CARCINOMA STAGE UNSPECIFIED
     Dosage: 50 MG, 1 IN 1 D, ORAL; 37.5 MG, 1 IN 1 D, ORAL
     Route: 048
     Dates: start: 20060101
  3. SUTENT [Suspect]
     Indication: METASTASES TO LUNG
     Dosage: 50 MG, 1 IN 1 D, ORAL; 37.5 MG, 1 IN 1 D, ORAL
     Route: 048
     Dates: start: 20060503
  4. SUTENT [Suspect]
     Indication: RENAL CELL CARCINOMA STAGE UNSPECIFIED
     Dosage: 50 MG, 1 IN 1 D, ORAL; 37.5 MG, 1 IN 1 D, ORAL
     Route: 048
     Dates: start: 20060503
  5. FENTANYL [Concomitant]
  6. MIDODRINE HYDROCHLORIDE (MIDODRINE HYDROCHLORIDE) [Concomitant]
  7. LEVOTHYROXINE SODIUM [Concomitant]

REACTIONS (4)
  - DYSPEPSIA [None]
  - MUCOSAL INFLAMMATION [None]
  - OESOPHAGEAL PAIN [None]
  - PALMAR-PLANTAR ERYTHRODYSAESTHESIA SYNDROME [None]
